FAERS Safety Report 5968033-1 (Version None)
Quarter: 2008Q4

REPORT INFORMATION
  Report Type: 
  Country: None (occurrence: None)
  Receive Date: 20081121
  Receipt Date: 20081110
  Transmission Date: 20090506
  Serious: Yes (Hospitalization)
  Sender: FDA-Public Use
  Company Number: 1000001730

PATIENT
  Age: 53 Year
  Sex: Male

DRUGS (8)
  1. ESCITALOPRAM [Suspect]
     Indication: DEPRESSION
     Dosage: ORAL
     Route: 048
     Dates: start: 20080701, end: 20080801
  2. LEVEMIR [Concomitant]
  3. HYDROKORTISON NYCOMED [Concomitant]
  4. TOSTREX GEL [Concomitant]
  5. FLORINEF [Concomitant]
  6. TETRALYSAL [Concomitant]
  7. OXSCAND [Concomitant]
  8. NOVORAPID [Concomitant]

REACTIONS (4)
  - ADRENAL INSUFFICIENCY [None]
  - BLOOD GLUCOSE INCREASED [None]
  - FATIGUE [None]
  - NAUSEA [None]
